FAERS Safety Report 9656315 (Version 1)
Quarter: 2013Q4

REPORT INFORMATION
  Report Type: Spontaneous
  Country: US (occurrence: US)
  Receive Date: 20131030
  Receipt Date: 20131030
  Transmission Date: 20140711
  Serious: No
  Sender: FDA-Public Use
  Company Number: US-PFIZER INC-2013309557

PATIENT
  Age: 66 Year
  Sex: Female
  Weight: 97.51 kg

DRUGS (5)
  1. CELEBREX [Suspect]
     Dosage: UNK
  2. KEPPRA [Concomitant]
     Indication: FRONTAL LOBE EPILEPSY
     Dosage: UNK
     Dates: start: 200612
  3. KEPPRA [Concomitant]
     Indication: CONVULSION
  4. TOPAMAX [Concomitant]
     Indication: FRONTAL LOBE EPILEPSY
     Dosage: UNK, 2X/DAY
     Route: 048
     Dates: start: 200612
  5. TOPAMAX [Concomitant]
     Indication: CONVULSION

REACTIONS (1)
  - Malaise [Unknown]
